FAERS Safety Report 10665327 (Version 1)
Quarter: 2014Q4

REPORT INFORMATION
  Report Type: Spontaneous
  Country: US (occurrence: US)
  Receive Date: 20141219
  Receipt Date: 20141219
  Transmission Date: 20150529
  Serious: Yes (Hospitalization)
  Sender: FDA-Public Use
  Company Number: US-B.I. PHARMACEUTICALS,INC./RIDGEFIELD-2014-BI-60648BP

PATIENT
  Sex: Female

DRUGS (6)
  1. METOPROLOL [Concomitant]
     Active Substance: METOPROLOL
     Indication: PRODUCT USED FOR UNKNOWN INDICATION
     Route: 048
  2. SYNTHROID [Concomitant]
     Active Substance: LEVOTHYROXINE SODIUM
     Indication: HYPOTHYROIDISM
     Route: 048
  3. MICARDIS HCT [Suspect]
     Active Substance: HYDROCHLOROTHIAZIDE\TELMISARTAN
     Indication: HYPERTENSION
     Dosage: DOSE PER APPLICATION: 40 MG / 12.5 MG; DAILY DOSE: 40 MG/ 12.5 MG
     Route: 048
     Dates: start: 2004, end: 2011
  4. LISINOPRIL. [Concomitant]
     Active Substance: LISINOPRIL
     Indication: PRODUCT USED FOR UNKNOWN INDICATION
     Route: 048
     Dates: start: 2014
  5. MICARDIS HCT [Suspect]
     Active Substance: HYDROCHLOROTHIAZIDE\TELMISARTAN
     Dosage: DOSE PER APPLICATION: 80 MG / 12.5 MG; DAILY DOSE: 80 MG/ 12.5 MG
     Route: 048
     Dates: start: 2011, end: 201405
  6. AMLODIPINE [Concomitant]
     Active Substance: AMLODIPINE BESYLATE
     Indication: HYPERTENSION
     Route: 048

REACTIONS (6)
  - Vomiting [Recovered/Resolved]
  - Alopecia [Recovered/Resolved]
  - Eczema [Recovered/Resolved]
  - Dehydration [Recovered/Resolved]
  - Tremor [Recovered/Resolved]
  - Madarosis [Recovered/Resolved]

NARRATIVE: CASE EVENT DATE: 2013
